FAERS Safety Report 5750741-9 (Version None)
Quarter: 2008Q2

REPORT INFORMATION
  Report Type: 
  Country: None (occurrence: None)
  Receive Date: 20080523
  Receipt Date: 20080523
  Transmission Date: 20081010
  Serious: Yes (Hospitalization)
  Sender: FDA-Public Use
  Company Number: None

PATIENT
  Age: 72 Year
  Sex: Female
  Weight: 80 kg

DRUGS (10)
  1. LEVOFLOXACIN [Suspect]
     Indication: URINARY TRACT INFECTION
     Dosage: 500MG DAILY PO
     Route: 048
  2. DEPAKOTE [Concomitant]
  3. NORVASC [Concomitant]
  4. ASPIRIN [Concomitant]
  5. PLAVIX [Concomitant]
  6. LISINOPRIL [Concomitant]
  7. TOPROL-XL [Concomitant]
  8. ACIPHEX [Concomitant]
  9. ZOLOFT [Concomitant]
  10. AMBIEN [Concomitant]

REACTIONS (1)
  - DELIRIUM [None]
